FAERS Safety Report 23145625 (Version 3)
Quarter: 2023Q4

REPORT INFORMATION
  Report Type: Spontaneous
  Country: DE (occurrence: DE)
  Receive Date: 20231103
  Receipt Date: 20231222
  Transmission Date: 20240109
  Serious: Yes (Hospitalization, Other)
  Sender: FDA-Public Use
  Company Number: DE-BoehringerIngelheim-2023-BI-270875

PATIENT
  Age: 68 Year
  Sex: Male
  Weight: 75 kg

DRUGS (7)
  1. PRADAXA [Suspect]
     Active Substance: DABIGATRAN ETEXILATE MESYLATE
     Indication: Atrial fibrillation
     Dosage: 1 AT 9 A.M. UNDEPENDENT FROM MEAL?1 AT 9 P.M. UNDEPENDENT FROM MEAL
  2. Ramipril 5 mg (1A Pharma) [Concomitant]
     Indication: Product used for unknown indication
     Dosage: 1 AT 8 A.M. DURING/AFTER MEAL
  3. Torasemid AL 10 mg (Aliud) [Concomitant]
     Indication: Product used for unknown indication
     Dosage: 1 AT 8 A.M. DURING/AFTER MEAL?1 AT 3 P.M. DURING/AFTER MEAL
  4. Metoprolol-Z 100 mg (Aliud) [Concomitant]
     Indication: Product used for unknown indication
     Dosage: 1 AT 9 A.M. AFTER MEAL
  5. Sitagliptin Metformin 50mg/1000 mg [Concomitant]
     Indication: Product used for unknown indication
     Dosage: 1 AT 9 A.M. DURING MEAL?1 AT 9 P.M. DURING MEAL
  6. Atorvastatin 20 mg (Stada) [Concomitant]
     Indication: Product used for unknown indication
     Dosage: 1 AT 9 P.M. UNDEPENDENT FROM MEAL
  7. NITROLINGUAL [Concomitant]
     Active Substance: NITROGLYCERIN
     Indication: Product used for unknown indication
     Dosage: SPRAY ONLY WHILE SEATED

REACTIONS (10)
  - Basal cell carcinoma [Unknown]
  - Cardioversion [Recovered/Resolved]
  - Cardiac failure [Unknown]
  - Acute respiratory failure [Unknown]
  - Pulmonary oedema [Unknown]
  - Basal cell carcinoma [Unknown]
  - Lens extraction [Unknown]
  - Tachycardia [Unknown]
  - Hand-foot-and-mouth disease [Unknown]
  - Pneumonia [Unknown]

NARRATIVE: CASE EVENT DATE: 20160701
